FAERS Safety Report 13340531 (Version 1)
Quarter: 2017Q1

REPORT INFORMATION
  Report Type: Spontaneous
  Country: ES (occurrence: ES)
  Receive Date: 20170316
  Receipt Date: 20170316
  Transmission Date: 20170428
  Serious: Yes (Death, Other)
  Sender: FDA-Public Use
  Company Number: ES-BRISTOL-MYERS SQUIBB COMPANY-BMS-2017-020743

PATIENT
  Age: 88 Year
  Sex: Female
  Weight: 50 kg

DRUGS (2)
  1. ORENCIA [Suspect]
     Active Substance: ABATACEPT
     Indication: RHEUMATOID ARTHRITIS
     Dosage: 125 MG, QWK
     Route: 058
     Dates: start: 20160405
  2. METHOTREXATE SODIUM. [Concomitant]
     Active Substance: METHOTREXATE SODIUM
     Indication: RHEUMATOID ARTHRITIS
     Dosage: 15 MG, QWK
     Route: 058
     Dates: start: 20080615

REACTIONS (1)
  - Meningoencephalitis herpetic [Fatal]

NARRATIVE: CASE EVENT DATE: 20161221
